FAERS Safety Report 9283095 (Version 1)
Quarter: 2013Q2

REPORT INFORMATION
  Report Type: Spontaneous
  Country: US (occurrence: US)
  Receive Date: 20130510
  Receipt Date: 20130510
  Transmission Date: 20140414
  Serious: No
  Sender: FDA-Public Use
  Company Number: US-GLAXOSMITHKLINE-A0979922A

PATIENT
  Age: 41 Year
  Sex: Female
  Weight: 70.9 kg

DRUGS (10)
  1. TYKERB [Suspect]
     Indication: PRODUCT USED FOR UNKNOWN INDICATION
     Dosage: 1000MG PER DAY
     Route: 048
  2. ZOMETA [Concomitant]
  3. VITAMIN B [Concomitant]
  4. ARGININE [Concomitant]
  5. L-CARNITINE [Concomitant]
  6. FISH OIL [Concomitant]
  7. HERCEPTIN [Concomitant]
  8. ALPHA LINOLENIC ACID [Concomitant]
  9. VALACYCLOVIR [Concomitant]
  10. CALCIUM + MAGNESIUM + VITAMIN D [Concomitant]

REACTIONS (1)
  - Neuropathy peripheral [Unknown]
